FAERS Safety Report 7757663-2 (Version None)
Quarter: 2011Q3

REPORT INFORMATION
  Report Type: 
  Country: None (occurrence: None)
  Receive Date: 20110916
  Receipt Date: 20110907
  Transmission Date: 20111222
  Serious: Yes (Hospitalization)
  Sender: FDA-Public Use
  Company Number: JP-CELGENEUS-087-21880-11090552

PATIENT
  Sex: Female

DRUGS (21)
  1. ACETAMINOPHEN [Concomitant]
     Dosage: 600 MILLIGRAM
     Route: 048
     Dates: start: 20100813, end: 20101020
  2. METHYCOBAL [Concomitant]
     Dosage: 1500 MICROGRAM
     Route: 048
     Dates: start: 20110120
  3. REVLIMID [Suspect]
     Dosage: 25 MILLIGRAM
     Route: 048
     Dates: start: 20100906, end: 20100926
  4. DEXAMETHASONE [Suspect]
     Indication: MULTIPLE MYELOMA
     Dosage: 40 MILLIGRAM
     Route: 048
     Dates: start: 20100809, end: 20100828
  5. TEGRETOL [Concomitant]
     Dosage: 200 MILLIGRAM
     Route: 048
     Dates: end: 20101020
  6. MAGMITT [Concomitant]
     Dosage: 990 MILLIGRAM
     Route: 048
     Dates: start: 20101029
  7. ALOSENN [Concomitant]
     Dosage: .5 GRAM
     Route: 048
     Dates: start: 20100813, end: 20101020
  8. REVLIMID [Suspect]
     Dosage: 15 MILLIGRAM
     Route: 048
     Dates: start: 20110218, end: 20110309
  9. LASIX [Concomitant]
     Indication: PROPHYLAXIS
     Dosage: 10 MILLIGRAM
     Route: 048
     Dates: end: 20100812
  10. CODEINE SULFATE [Concomitant]
     Dosage: 60 MILLIGRAM
     Route: 048
     Dates: start: 20100813, end: 20101020
  11. ACETAMINOPHEN [Concomitant]
     Dosage: 400 MILLIGRAM
     Route: 048
     Dates: start: 20110106
  12. REVLIMID [Suspect]
     Indication: MULTIPLE MYELOMA
     Dosage: 25 MILLIGRAM
     Route: 048
     Dates: start: 20100809, end: 20100829
  13. MAGNESIUM OXIDE [Concomitant]
     Dosage: 1 GRAM
     Route: 048
     Dates: end: 20101020
  14. DEXAMETHASONE [Suspect]
     Dosage: 40 MILLIGRAM
     Route: 048
     Dates: start: 20110218, end: 20110221
  15. FUROSEMIDE [Concomitant]
     Indication: PROPHYLAXIS
     Dosage: 10 MILLIGRAM
     Route: 048
     Dates: start: 20100813, end: 20101020
  16. DEXAMETHASONE [Suspect]
     Dosage: 40 MILLIGRAM
     Route: 048
     Dates: start: 20100906, end: 20100925
  17. REVLIMID [Suspect]
     Dosage: 25 MILLIGRAM
     Route: 048
     Dates: start: 20101004, end: 20101020
  18. REVLIMID [Suspect]
     Dosage: 15 MILLIGRAM
     Route: 048
     Dates: start: 20110317, end: 20110406
  19. REVLIMID [Suspect]
     Dosage: 15 MILLIGRAM
     Route: 048
     Dates: start: 20110412, end: 20110502
  20. DEXAMETHASONE [Suspect]
     Dosage: 40 MILLIGRAM
     Route: 048
     Dates: start: 20101004, end: 20101015
  21. PURSENNID [Concomitant]
     Dosage: 12 MILLIGRAM
     Route: 048
     Dates: end: 20101020

REACTIONS (5)
  - HYPOKALAEMIA [None]
  - NEUROGENIC BLADDER [None]
  - INSOMNIA [None]
  - DEHYDRATION [None]
  - URINARY TRACT INFECTION [None]
